FAERS Safety Report 23777218 (Version 3)
Quarter: 2024Q4

REPORT INFORMATION
  Report Type: Report from Study
  Country: CA (occurrence: CA)
  Receive Date: 20240424
  Receipt Date: 20241101
  Transmission Date: 20250114
  Serious: Yes (Other)
  Sender: Alvotech
  Company Number: CA-JAMP PHARMA CORPORATION-2023-JAM-CA-00909

PATIENT
  Age: 13 Year
  Sex: Female

DRUGS (4)
  1. SIMLANDI [Suspect]
     Active Substance: ADALIMUMAB-RYVK
     Indication: Juvenile idiopathic arthritis
     Dosage: 40 MG, EVERY WEEK FOR 8 WEEKS
     Route: 058
  2. SIMLANDI [Suspect]
     Active Substance: ADALIMUMAB-RYVK
     Indication: Juvenile idiopathic arthritis
     Dosage: 40 MG, EVERY 2 WEEKS
     Route: 058
  3. SIMLANDI [Suspect]
     Active Substance: ADALIMUMAB-RYVK
     Indication: Juvenile idiopathic arthritis
     Dosage: 40 MG, EVERY 3 WEEKS
     Route: 058
     Dates: start: 20230201
  4. SIMLANDI [Suspect]
     Active Substance: ADALIMUMAB-RYVK
     Indication: Juvenile idiopathic arthritis
     Dosage: 40 MG, EVERY 2 WEEK
     Route: 058

REACTIONS (3)
  - Juvenile idiopathic arthritis [Not Recovered/Not Resolved]
  - Off label use [Not Recovered/Not Resolved]
  - Product dose omission issue [Unknown]

NARRATIVE: CASE EVENT DATE: 20240603
